FAERS Safety Report 7348489-2 (Version None)
Quarter: 2011Q1

REPORT INFORMATION
  Report Type: 
  Country: None (occurrence: None)
  Receive Date: 20110314
  Receipt Date: 20110302
  Transmission Date: 20110831
  Serious: Yes (Hospitalization)
  Sender: FDA-Public Use
  Company Number: BR-ASTRAZENECA-2011SE11771

PATIENT
  Age: 39 Year
  Sex: Female

DRUGS (3)
  1. SEROQUEL [Suspect]
     Indication: BIPOLAR DISORDER
     Route: 048
     Dates: start: 20090101, end: 20100201
  2. SEROQUEL [Suspect]
     Route: 048
     Dates: start: 20100201, end: 20110301
  3. CLONAZEPAM [Concomitant]
     Route: 048
     Dates: end: 20110201

REACTIONS (6)
  - WEIGHT INCREASED [None]
  - BIPOLAR DISORDER [None]
  - PANCREATITIS ACUTE [None]
  - VULVOVAGINAL CANDIDIASIS [None]
  - SOMNOLENCE [None]
  - VIRAL INFECTION [None]
